FAERS Safety Report 15772424 (Version 3)
Quarter: 2019Q1

REPORT INFORMATION
  Report Type: Report from Study
  Country: IL (occurrence: IL)
  Receive Date: 20181228
  Receipt Date: 20190312
  Transmission Date: 20190417
  Serious: Yes (Hospitalization, Other)
  Sender: FDA-Public Use
  Company Number: PHHY2018IL036493

PATIENT
  Age: 57 Year
  Sex: Female
  Weight: 61 kg

DRUGS (4)
  1. AFINITOR [Suspect]
     Active Substance: EVEROLIMUS
     Indication: BREAST CANCER
     Dosage: 10 MG, QD
     Route: 048
     Dates: start: 20180520, end: 20180527
  2. AFINITOR [Suspect]
     Active Substance: EVEROLIMUS
     Dosage: 7.5 MG, QD
     Route: 048
     Dates: end: 20190217
  3. AFINITOR [Suspect]
     Active Substance: EVEROLIMUS
     Dosage: 10 MG, QD
     Route: 048
     Dates: start: 20180603, end: 20180730
  4. AFINITOR [Suspect]
     Active Substance: EVEROLIMUS
     Dosage: 7.5 MG, QD
     Route: 048
     Dates: start: 20180815, end: 20180928

REACTIONS (26)
  - Blood cholesterol increased [Not Recovered/Not Resolved]
  - Rash [Recovered/Resolved]
  - Aphthous ulcer [Recovered/Resolved]
  - Bacteriuria [Unknown]
  - Urine output decreased [Recovered/Resolved]
  - Pulmonary oedema [Recovering/Resolving]
  - Muscle strain [Not Recovered/Not Resolved]
  - Dysphonia [Not Recovered/Not Resolved]
  - Joint swelling [Recovering/Resolving]
  - Insomnia [Not Recovered/Not Resolved]
  - Glossodynia [Not Recovered/Not Resolved]
  - Oral pain [Recovered/Resolved]
  - Pyrexia [Recovered/Resolved]
  - Oedema peripheral [Recovering/Resolving]
  - Hepatic lesion [Not Recovered/Not Resolved]
  - Rash [Recovering/Resolving]
  - Renal cyst [Recovered/Resolved]
  - Burning sensation [Recovered/Resolved]
  - Back pain [Recovered/Resolved]
  - Productive cough [Unknown]
  - Oral pain [Recovered/Resolved]
  - Rash generalised [Recovering/Resolving]
  - Pruritus [Recovered/Resolved]
  - Sensation of foreign body [Not Recovered/Not Resolved]
  - Pharyngitis [Unknown]
  - Vomiting [Recovered/Resolved]

NARRATIVE: CASE EVENT DATE: 20180729
